FAERS Safety Report 5298925-0 (Version None)
Quarter: 2007Q2

REPORT INFORMATION
  Report Type: 
  Country: None (occurrence: None)
  Receive Date: 20070417
  Receipt Date: 20070406
  Transmission Date: 20071010
  Serious: Yes (Other)
  Sender: FDA-Public Use
  Company Number: PHBS2007JP06048

PATIENT
  Age: 58 Year
  Sex: Female
  Weight: 77 kg

DRUGS (4)
  1. ZOMETA [Suspect]
     Indication: METASTASES TO BONE
     Dosage: 4 MG/MONTH
     Route: 042
     Dates: start: 20060427, end: 20070111
  2. TAXOTERE [Concomitant]
     Indication: BREAST CANCER
     Route: 042
     Dates: start: 20060307, end: 20061109
  3. HERCEPTIN [Concomitant]
     Indication: BREAST CANCER
     Route: 042
     Dates: start: 20060406
  4. TS 1 [Concomitant]
     Indication: BREAST CANCER
     Dosage: 120 MG, UNK
     Route: 048
     Dates: start: 20070112

REACTIONS (9)
  - C-REACTIVE PROTEIN INCREASED [None]
  - GINGIVAL SWELLING [None]
  - HAEMATOCRIT DECREASED [None]
  - HAEMOGLOBIN DECREASED [None]
  - INCISIONAL DRAINAGE [None]
  - OSTEONECROSIS [None]
  - PRIMARY SEQUESTRUM [None]
  - RED BLOOD CELL COUNT DECREASED [None]
  - TOOTH EXTRACTION [None]
